FAERS Safety Report 17880507 (Version 1)
Quarter: 2020Q2

REPORT INFORMATION
  Report Type: Report from Study
  Country: CA (occurrence: CA)
  Receive Date: 20200610
  Receipt Date: 20200610
  Transmission Date: 20200714
  Serious: Yes (Other)
  Sender: FDA-Public Use
  Company Number: PHHY2013CA022100

PATIENT
  Age: 47 Year
  Sex: Female

DRUGS (2)
  1. ZOMETA [Suspect]
     Active Substance: ZOLEDRONIC ACID
     Indication: BREAST CANCER
     Dosage: 4 MG, EVERY 6 MONTHS
     Route: 042
     Dates: start: 20130215
  2. ZOMETA [Suspect]
     Active Substance: ZOLEDRONIC ACID
     Dosage: UNK
     Route: 042
     Dates: start: 20180314

REACTIONS (18)
  - Blood cholesterol increased [Unknown]
  - Stress [Unknown]
  - Cough [Unknown]
  - Joint stiffness [Recovered/Resolved]
  - Wound infection [Recovered/Resolved]
  - Nasopharyngitis [Unknown]
  - Rhinorrhoea [Unknown]
  - Contusion [Unknown]
  - Headache [Recovered/Resolved]
  - Post procedural complication [Unknown]
  - Wound necrosis [Not Recovered/Not Resolved]
  - Infusion site pain [Unknown]
  - Oropharyngeal pain [Unknown]
  - Impaired healing [Recovering/Resolving]
  - Vein disorder [Unknown]
  - Poor venous access [Unknown]
  - White blood cell count decreased [Unknown]
  - Chills [Recovered/Resolved]

NARRATIVE: CASE EVENT DATE: 20130618
